FAERS Safety Report 12737458 (Version 3)
Quarter: 2016Q3

REPORT INFORMATION
  Report Type: Spontaneous
  Country: US (occurrence: US)
  Receive Date: 20160912
  Receipt Date: 20160915
  Transmission Date: 20161109
  Serious: Yes (Other)
  Sender: FDA-Public Use
  Company Number: US-TEVA-691511ACC

PATIENT
  Age: 29 Year
  Sex: Female
  Weight: 64.01 kg

DRUGS (1)
  1. PARAGARD T 380A [Suspect]
     Active Substance: COPPER
     Indication: CONTRACEPTION
     Dates: start: 20160901, end: 20160902

REACTIONS (6)
  - Device dislocation [Recovered/Resolved]
  - Menstruation delayed [Not Recovered/Not Resolved]
  - Pain in extremity [Recovered/Resolved]
  - Device expulsion [Recovered/Resolved]
  - Neck pain [Recovered/Resolved]
  - Device issue [Unknown]

NARRATIVE: CASE EVENT DATE: 20160901
